FAERS Safety Report 5843463-7 (Version None)
Quarter: 2008Q3

REPORT INFORMATION
  Report Type: 
  Country: None (occurrence: None)
  Receive Date: 20080813
  Receipt Date: 20080805
  Transmission Date: 20090109
  Serious: Yes (Other)
  Sender: FDA-Public Use
  Company Number: BR-BRISTOL-MYERS SQUIBB COMPANY-14294045

PATIENT
  Age: 27 Year
  Sex: Male

DRUGS (6)
  1. CISPLATIN [Suspect]
     Indication: BONE SARCOMA
  2. CYCLOPHOSPHAMIDE [Suspect]
     Indication: BONE SARCOMA
  3. DOXORUBICIN HCL [Suspect]
     Indication: BONE SARCOMA
  4. ETOPOSIDE [Suspect]
     Indication: BONE SARCOMA
  5. VINCRISTINE SULFATE [Suspect]
     Indication: BONE SARCOMA
  6. DACTINOMYCIN [Suspect]
     Indication: BONE SARCOMA

REACTIONS (3)
  - DEAFNESS BILATERAL [None]
  - PRURITUS [None]
  - TINNITUS [None]
